FAERS Safety Report 6293421-6 (Version None)
Quarter: 2009Q3

REPORT INFORMATION
  Report Type: 
  Country: None (occurrence: None)
  Receive Date: 20090802
  Receipt Date: 20090728
  Transmission Date: 20100115
  Serious: Yes (Disabling, Other)
  Sender: FDA-Public Use
  Company Number: CA-ALLERGAN-0910559US

PATIENT
  Age: 22 Year
  Sex: Female

DRUGS (3)
  1. BOTOX [Suspect]
     Indication: GAIT DISTURBANCE
     Dosage: 400 UNITS, SINGLE
     Route: 030
  2. BOTOX [Suspect]
     Dosage: 300 UNITS, SINGLE
     Route: 030
  3. BOTOX [Suspect]
     Dosage: 300 UNITS, SINGLE
     Route: 030

REACTIONS (5)
  - ACTIVITIES OF DAILY LIVING IMPAIRED [None]
  - GAIT DISTURBANCE [None]
  - INFLUENZA LIKE ILLNESS [None]
  - MUSCULAR WEAKNESS [None]
  - WHEELCHAIR USER [None]
